FAERS Safety Report 4426331-7 (Version None)
Quarter: 2004Q3

REPORT INFORMATION
  Report Type: 
  Country: None (occurrence: None)
  Receive Date: 20040811
  Receipt Date: 20040802
  Transmission Date: 20050211
  Serious: Yes (Death)
  Sender: FDA-Public Use
  Company Number: 2004-BP-06518RO

PATIENT
  Age: 67 Year
  Sex: Male

DRUGS (2)
  1. METHOTREXATE [Suspect]
     Indication: RHEUMATOID ARTHRITIS
     Dosage: 7.5 MG PER WEEK (NR, 1 IN 1 WK)
  2. PREDNISOLONE OR PREDNISONE (CORTICOSTEROIDS) [Concomitant]

REACTIONS (2)
  - HEPATITIS [None]
  - INTERSTITIAL LUNG DISEASE [None]
